FAERS Safety Report 26055972 (Version 1)
Quarter: 2025Q4

REPORT INFORMATION
  Report Type: Report from Study
  Country: US (occurrence: US)
  Receive Date: 20251118
  Receipt Date: 20251118
  Transmission Date: 20260117
  Serious: No
  Sender: BIOGEN
  Company Number: US-BIOGEN-2090436

PATIENT
  Age: 32 Year
  Sex: Female

DRUGS (2)
  1. ZURZUVAE [Suspect]
     Active Substance: ZURANOLONE
     Indication: Major depression
     Dates: start: 202510
  2. ZURZUVAE [Suspect]
     Active Substance: ZURANOLONE
     Indication: Perinatal depression

REACTIONS (2)
  - Off label use [Unknown]
  - Somnolence [Unknown]
